FAERS Safety Report 9970628 (Version 1)
Quarter: 2014Q1

REPORT INFORMATION
  Report Type: Spontaneous
  Country: US (occurrence: US)
  Receive Date: 20140306
  Receipt Date: 20140306
  Transmission Date: 20141002
  Serious: No
  Sender: FDA-Public Use
  Company Number: US-ABBVIE-13P-163-1149638-00

PATIENT
  Sex: Male

DRUGS (1)
  1. HUMIRA [Suspect]
     Indication: PRODUCT USED FOR UNKNOWN INDICATION
     Dates: start: 20130914, end: 20130914

REACTIONS (3)
  - Injury associated with device [Recovered/Resolved]
  - Accidental exposure to product [Recovered/Resolved]
  - Device malfunction [Recovered/Resolved]
